FAERS Safety Report 21239754 (Version 1)
Quarter: 2022Q3

REPORT INFORMATION
  Report Type: Spontaneous
  Country: US (occurrence: US)
  Receive Date: 20220822
  Receipt Date: 20220822
  Transmission Date: 20221026
  Serious: No
  Sender: FDA-Public Use
  Company Number: US-SA-SAC20220817000369

PATIENT
  Sex: Male

DRUGS (1)
  1. DUPIXENT [Suspect]
     Active Substance: DUPILUMAB
     Indication: Nasal polyps
     Dosage: 300 MG, QOW
     Route: 058
     Dates: start: 20220814

REACTIONS (6)
  - Nasal polyps [Unknown]
  - Ageusia [Unknown]
  - Anosmia [Unknown]
  - Condition aggravated [Unknown]
  - Injection site pruritus [Recovered/Resolved]
  - Product use in unapproved indication [Unknown]
